FAERS Safety Report 8367621-5 (Version None)
Quarter: 2012Q2

REPORT INFORMATION
  Report Type: 
  Country: None (occurrence: None)
  Receive Date: 20120517
  Receipt Date: 20120501
  Transmission Date: 20120825
  Serious: No
  Sender: FDA-Public Use
  Company Number: US-ENDO PHARMACEUTICALS INC.-ENDC20120028

PATIENT
  Sex: Female
  Weight: 63.56 kg

DRUGS (1)
  1. OXYCODONE AND ACETAMINOPHEN [Suspect]
     Indication: PAIN
     Dosage: 10/325 MG
     Route: 048

REACTIONS (2)
  - DRUG EFFECT DECREASED [None]
  - DRUG SCREEN NEGATIVE [None]
